FAERS Safety Report 6789189-7 (Version None)
Quarter: 2010Q2

REPORT INFORMATION
  Report Type: 
  Country: None (occurrence: None)
  Receive Date: 20100623
  Receipt Date: 20081030
  Transmission Date: 20101027
  Serious: No
  Sender: FDA-Public Use
  Company Number: US-PFIZER INC-2008056205

PATIENT
  Sex: Female
  Weight: 42.18 kg

DRUGS (9)
  1. GEODON [Suspect]
     Indication: DEPRESSION
     Dates: start: 20080501
  2. GEODON [Suspect]
     Indication: ANXIETY
  3. KLONOPIN [Concomitant]
     Indication: ANXIETY
  4. COZAAR [Concomitant]
     Indication: HYPERTENSION
  5. ATENOLOL [Concomitant]
     Indication: HYPERTENSION
  6. ZOCOR [Concomitant]
     Indication: BLOOD CHOLESTEROL INCREASED
  7. ACETYLSALICYLIC ACID [Concomitant]
  8. CYMBALTA [Concomitant]
     Indication: ANXIETY
  9. CYMBALTA [Concomitant]
     Indication: DEPRESSION

REACTIONS (18)
  - AGITATION [None]
  - ANXIETY [None]
  - BREATH ODOUR [None]
  - CONSTIPATION [None]
  - COUGH [None]
  - DECREASED APPETITE [None]
  - DEPRESSION [None]
  - DRUG DOSE OMISSION [None]
  - DRUG INEFFECTIVE [None]
  - EMOTIONAL DISORDER [None]
  - FATIGUE [None]
  - INCONTINENCE [None]
  - IRRITABILITY [None]
  - POLLAKIURIA [None]
  - POSTNASAL DRIP [None]
  - RHINITIS [None]
  - SOMNOLENCE [None]
  - WEIGHT DECREASED [None]
